FAERS Safety Report 14297373 (Version 1)
Quarter: 2017Q4

REPORT INFORMATION
  Report Type: Spontaneous
  Country: US (occurrence: US)
  Receive Date: 20171218
  Receipt Date: 20171218
  Transmission Date: 20180321
  Serious: No
  Sender: FDA-Public Use
  Company Number: US-BAYER-2017-240449

PATIENT
  Age: 7 Year
  Weight: 31.75 kg

DRUGS (1)
  1. MIRALAX [Suspect]
     Active Substance: POLYETHYLENE GLYCOL 3350
     Indication: GASTROINTESTINAL DISORDER
     Dosage: UNK
     Route: 048
     Dates: start: 20171120, end: 20171209

REACTIONS (10)
  - Inappropriate prescribing [Unknown]
  - Aggression [Unknown]
  - Pain [None]
  - Inappropriate prescribing [Unknown]
  - Emotional disorder [Recovering/Resolving]
  - Screaming [None]
  - Inappropriate prescribing [None]
  - Off label use [Unknown]
  - Drug administered to patient of inappropriate age [Unknown]
  - Abnormal behaviour [Recovering/Resolving]

NARRATIVE: CASE EVENT DATE: 201711
